FAERS Safety Report 10466027 (Version 1)
Quarter: 2014Q3

REPORT INFORMATION
  Report Type: Spontaneous
  Country: IT (occurrence: IT)
  Receive Date: 20140922
  Receipt Date: 20140922
  Transmission Date: 20150326
  Serious: Yes (Hospitalization)
  Sender: FDA-Public Use
  Company Number: IT-PFIZER INC-2014258765

PATIENT
  Age: 64 Year
  Sex: Male

DRUGS (7)
  1. MODURETIC 5-50 [Concomitant]
     Active Substance: AMILORIDE HYDROCHLORIDE\HYDROCHLOROTHIAZIDE
     Dosage: UNK
  2. CORDARONE [Suspect]
     Active Substance: AMIODARONE HYDROCHLORIDE
     Indication: ATRIAL FIBRILLATION
     Dosage: 1 DF, TOTAL
     Route: 048
     Dates: start: 20140828, end: 20140828
  3. CONGESCOR [Concomitant]
     Active Substance: BISOPROLOL
     Dosage: UNK
  4. ZOPRANOL [Concomitant]
     Active Substance: ZOFENOPRIL
     Dosage: UNK
  5. STILNOX [Concomitant]
     Active Substance: ZOLPIDEM TARTRATE
     Dosage: UNK
  6. ASCRIPTIN [Concomitant]
     Active Substance: ASPIRIN
     Dosage: UNK
  7. ALMARYTM [Suspect]
     Active Substance: FLECAINIDE ACETATE
     Indication: ATRIAL FIBRILLATION
     Dosage: 2 DF, TOTAL
     Route: 048
     Dates: start: 20140828, end: 20140828

REACTIONS (6)
  - Syncope [Recovering/Resolving]
  - Vomiting [Recovering/Resolving]
  - Loss of consciousness [Recovering/Resolving]
  - Hypotension [Recovering/Resolving]
  - Vertigo [Recovering/Resolving]
  - Hyperhidrosis [Recovering/Resolving]

NARRATIVE: CASE EVENT DATE: 20140828
